FAERS Safety Report 9181744 (Version 8)
Quarter: 2014Q1

REPORT INFORMATION
  Report Type: Report from Study
  Country: BE (occurrence: BE)
  Receive Date: 20130322
  Receipt Date: 20140210
  Transmission Date: 20141002
  Serious: Yes (Death, Life-Threatening, Hospitalization)
  Sender: FDA-Public Use
  Company Number: BE-BAYER-2013-032925

PATIENT
  Age: 72 Year
  Sex: Female
  Weight: 59.3 kg

DRUGS (19)
  1. REGORAFENIB [Suspect]
     Indication: COLORECTAL CANCER METASTATIC
     Dosage: 40 MG, QID
     Route: 048
     Dates: start: 20130226, end: 20130312
  2. BETAHISTINE [Concomitant]
     Indication: MENIERE^S DISEASE
     Dosage: 8 MG, QD
     Route: 048
     Dates: start: 2000, end: 20130311
  3. BETAHISTINE [Concomitant]
     Indication: MENIERE^S DISEASE
     Dosage: 16 MG, QD
     Route: 048
     Dates: start: 20130312
  4. OMEPRAZOLE [Concomitant]
     Indication: GASTROOESOPHAGEAL REFLUX DISEASE
     Dosage: 40 MG, BID
     Route: 048
     Dates: start: 200907, end: 20130225
  5. OMEPRAZOLE [Concomitant]
     Indication: GASTROOESOPHAGEAL REFLUX DISEASE
     Dosage: 40 MG, QD
     Route: 048
     Dates: start: 20130226
  6. TRITACE [Concomitant]
     Indication: HYPERTENSION
     Dosage: 10 MG, QD
     Route: 048
     Dates: start: 201006, end: 20130312
  7. FOLAVIT [Concomitant]
     Indication: ANAEMIA
     Dosage: 40 MG, QD
     Route: 048
     Dates: start: 20130226
  8. BEFACT [CYANOCOBALAMIN,PYRIDOXINE,THIAMINE] [Concomitant]
     Indication: ANAEMIA
     Dosage: 1 DF, QD
     Route: 048
     Dates: start: 20130226
  9. FERRICURE [Concomitant]
     Indication: ANAEMIA
     Dosage: 1 DF, UNK
     Route: 048
     Dates: start: 20130226
  10. FRAXIPARINE [Concomitant]
     Indication: THROMBOSIS PROPHYLAXIS
     Dosage: 1 ML, QD
     Route: 058
     Dates: start: 20130312, end: 20130318
  11. FORLAX [Concomitant]
     Indication: DIARRHOEA
     Dosage: 1 PACK, PRN
     Route: 048
     Dates: start: 20130315, end: 20130321
  12. FRAXODI [Concomitant]
     Indication: THROMBOSIS PROPHYLAXIS
     Dosage: 0.6 ML, QD
     Route: 058
     Dates: start: 20130319
  13. STRUMAZOL [Concomitant]
     Indication: HYPERTHYROIDISM
     Dosage: 10 MG, TID
     Route: 048
     Dates: start: 20130319
  14. LANOXIN [Concomitant]
     Indication: VENTRICULAR TACHYCARDIA
     Dosage: 0.125 MG, QD
     Route: 048
     Dates: start: 20130322
  15. INDERAL [Concomitant]
     Indication: VENTRICULAR TACHYCARDIA
     Dosage: 40 MG, BID
     Route: 048
     Dates: start: 20130322
  16. FUROSEMIDE [FUROSEMIDE] [Concomitant]
     Indication: OEDEMA PERIPHERAL
     Dosage: 40MG DAILY
     Route: 048
     Dates: start: 20130327
  17. FUROSEMIDE [FUROSEMIDE] [Concomitant]
     Indication: OEDEMA PERIPHERAL
     Dosage: 20MG/2ML PRN
     Route: 042
     Dates: start: 20130328, end: 20130329
  18. PRIMPERAN [Concomitant]
     Indication: NAUSEA
     Dosage: 10 MG, QD
     Route: 048
     Dates: start: 20130327
  19. OPTIRAY [Concomitant]
     Indication: COMPUTERISED TOMOGRAM
     Dosage: 90 ML, ONCE
     Route: 042
     Dates: start: 20130403, end: 20130403

REACTIONS (3)
  - Streptococcal sepsis [Fatal]
  - Dehydration [Recovered/Resolved]
  - Anaemia [Recovered/Resolved]
